FAERS Safety Report 24074729 (Version 1)
Quarter: 2024Q3

REPORT INFORMATION
  Report Type: Report from Study
  Country: US (occurrence: US)
  Receive Date: 20240710
  Receipt Date: 20240710
  Transmission Date: 20241017
  Serious: Yes (Other)
  Sender: PFIZER
  Company Number: US-PFIZER INC-2024SGN04480

PATIENT
  Age: 59 Year
  Sex: Female

DRUGS (1)
  1. TUKYSA [Suspect]
     Active Substance: TUCATINIB
     Indication: Breast cancer female
     Dosage: 150 MG
     Dates: start: 20240221

REACTIONS (5)
  - Ascites [Unknown]
  - Nausea [Unknown]
  - Diarrhoea [Unknown]
  - Blood potassium decreased [Unknown]
  - Blood magnesium decreased [Unknown]
